FAERS Safety Report 16919160 (Version 3)
Quarter: 2020Q4

REPORT INFORMATION
  Report Type: Spontaneous
  Country: US (occurrence: US)
  Receive Date: 20191015
  Receipt Date: 20201022
  Transmission Date: 20210113
  Serious: No
  Sender: FDA-Public Use
  Company Number: US-PFIZER INC-2019443945

PATIENT
  Age: 50 Year
  Sex: Male

DRUGS (3)
  1. SOMAVERT [Suspect]
     Active Substance: PEGVISOMANT
     Indication: GIGANTISM
     Dosage: 20 MG, UNK
     Dates: start: 20180623
  2. SOMAVERT [Suspect]
     Active Substance: PEGVISOMANT
     Indication: ACROMEGALY
     Dosage: 120 MG, MONTHLY (EVERY 28 DAYS)
     Route: 058
     Dates: start: 20171020
  3. SOMATULINE [LANREOTIDE] [Suspect]
     Active Substance: LANREOTIDE
     Dosage: UNK

REACTIONS (4)
  - Prescribed overdose [Unknown]
  - Flushing [Unknown]
  - Off label use [Unknown]
  - Diarrhoea [Not Recovered/Not Resolved]

NARRATIVE: CASE EVENT DATE: 20171020
